FAERS Safety Report 9717047 (Version 2)
Quarter: 2015Q3

REPORT INFORMATION
  Report Type: Spontaneous
  Country: US (occurrence: US)
  Receive Date: 20131127
  Receipt Date: 20150804
  Transmission Date: 20151125
  Serious: No
  Sender: FDA-Public Use
  Company Number: US-GILEAD-2009-0020718

PATIENT
  Age: 75 Year
  Sex: Female
  Weight: 54.43 kg

DRUGS (16)
  1. OXYGEN. [Concomitant]
     Active Substance: OXYGEN
  2. REVATIO [Concomitant]
     Active Substance: SILDENAFIL CITRATE
  3. NORVASC [Concomitant]
     Active Substance: AMLODIPINE BESYLATE
  4. PRILOSEC [Concomitant]
     Active Substance: OMEPRAZOLE MAGNESIUM
  5. ATROVENT [Concomitant]
     Active Substance: IPRATROPIUM BROMIDE
  6. LETAIRIS [Suspect]
     Active Substance: AMBRISENTAN
     Indication: PULMONARY ARTERIAL HYPERTENSION
     Route: 048
     Dates: start: 20080503
  7. CYTOMEL [Concomitant]
     Active Substance: LIOTHYRONINE SODIUM
  8. PARACETAMOL/HYDROCODONE BITARTRATE [Concomitant]
  9. FLOVENT HFA [Concomitant]
     Active Substance: FLUTICASONE PROPIONATE
  10. PREDNISONE. [Concomitant]
     Active Substance: PREDNISONE
  11. CLINDAMYCIN [Concomitant]
     Active Substance: CLINDAMYCIN\CLINDAMYCIN PHOSPHATE
  12. ALBUTEROL. [Concomitant]
     Active Substance: ALBUTEROL
  13. SERVENT DISKUS [Concomitant]
  14. SYNTHROID [Concomitant]
     Active Substance: LEVOTHYROXINE SODIUM
  15. FOSAMAX [Concomitant]
     Active Substance: ALENDRONATE SODIUM
  16. IMODIUM AD [Concomitant]
     Active Substance: LOPERAMIDE HYDROCHLORIDE

REACTIONS (3)
  - Respiratory tract irritation [Unknown]
  - Vitreous floaters [Unknown]
  - Nasal congestion [Unknown]
